FAERS Safety Report 8254961-3 (Version None)
Quarter: 2012Q2

REPORT INFORMATION
  Report Type: 
  Country: None (occurrence: None)
  Receive Date: 20120403
  Receipt Date: 20120328
  Transmission Date: 20120825
  Serious: Yes (Other)
  Sender: FDA-Public Use
  Company Number: US-PFIZER INC-2012080015

PATIENT
  Sex: Female

DRUGS (3)
  1. TOVIAZ [Suspect]
     Indication: HYPERTONIC BLADDER
     Dosage: 4 MG, 1X/DAY
     Route: 048
  2. POTASSIUM [Concomitant]
     Dosage: UNK
  3. LIPITOR [Concomitant]
     Dosage: UNK

REACTIONS (5)
  - VISION BLURRED [None]
  - CONSTIPATION [None]
  - DRY MOUTH [None]
  - URINARY TRACT INFECTION [None]
  - DRY SKIN [None]
